FAERS Safety Report 5712659-7 (Version None)
Quarter: 2008Q2

REPORT INFORMATION
  Report Type: 
  Country: None (occurrence: None)
  Receive Date: 20080422
  Receipt Date: 20080421
  Transmission Date: 20081010
  Serious: Yes (Other)
  Sender: FDA-Public Use
  Company Number: A0687796A

PATIENT
  Age: 35 Year
  Sex: Female

DRUGS (2)
  1. ALLI [Suspect]
     Route: 048
     Dates: start: 20070901, end: 20071028
  2. NO CONCURRENT MEDICATION [Concomitant]

REACTIONS (10)
  - DISCOMFORT [None]
  - FAECAL INCONTINENCE [None]
  - FREQUENT BOWEL MOVEMENTS [None]
  - HAEMORRHOIDS [None]
  - LOCAL SWELLING [None]
  - PHARMACEUTICAL PRODUCT COMPLAINT [None]
  - PROCTALGIA [None]
  - RECTAL HAEMORRHAGE [None]
  - RECTAL PROLAPSE [None]
  - SENSORY DISTURBANCE [None]
